FAERS Safety Report 7197448-1 (Version None)
Quarter: 2010Q4

REPORT INFORMATION
  Report Type: 
  Country: None (occurrence: None)
  Receive Date: 20101213
  Receipt Date: 20101201
  Transmission Date: 20110411
  Serious: Yes (Other)
  Sender: FDA-Public Use
  Company Number: 2010SP053357

PATIENT
  Age: 41 Year
  Sex: Female
  Weight: 102.5129 kg

DRUGS (12)
  1. IMPLANON [Suspect]
     Indication: CONTRACEPTION
     Dosage: SBDE
     Route: 059
     Dates: start: 20070425, end: 20100303
  2. IMPLANON [Suspect]
     Indication: MIGRAINE
     Dosage: SBDE
     Route: 059
     Dates: start: 20070425, end: 20100303
  3. IMPLANON [Suspect]
     Indication: CONTRACEPTION
     Dosage: SBDE
     Route: 059
     Dates: start: 20100303
  4. IMPLANON [Suspect]
     Indication: MIGRAINE
     Dosage: SBDE
     Route: 059
     Dates: start: 20100303
  5. IMPLANON [Suspect]
  6. ZOLOFT [Concomitant]
  7. VICODIN [Concomitant]
  8. TIZANIDINE HCL [Concomitant]
  9. HYDROCODONE BITARTRATE + ACETAMINOPHEN [Concomitant]
  10. DICLOFENAC [Concomitant]
  11. HYOMOX [Concomitant]
  12. OMEPRAZOLE [Concomitant]

REACTIONS (7)
  - AMENORRHOEA [None]
  - COLITIS [None]
  - NO THERAPEUTIC RESPONSE [None]
  - PELVIC PAIN [None]
  - PSEUDOMEMBRANOUS COLITIS [None]
  - URINARY TRACT INFECTION [None]
  - WEIGHT DECREASED [None]
